FAERS Safety Report 4673683-9 (Version None)
Quarter: 2005Q2

REPORT INFORMATION
  Report Type: 
  Country: None (occurrence: None)
  Receive Date: 20050523
  Receipt Date: 20050510
  Transmission Date: 20051028
  Serious: Yes (Hospitalization)
  Sender: FDA-Public Use
  Company Number: 2005BI009525

PATIENT
  Age: 75 Year
  Sex: Female
  Weight: 72.5755 kg

DRUGS (3)
  1. AVONEX [Suspect]
     Indication: MULTIPLE SCLEROSIS
     Dosage: 30 UG QW IM
     Route: 030
     Dates: start: 20050301
  2. VERPAMIL [Concomitant]
  3. WARFARIN SODIUM [Concomitant]

REACTIONS (8)
  - ATRIAL FIBRILLATION [None]
  - FATIGUE [None]
  - FIBROMYALGIA [None]
  - HYPERTENSION [None]
  - INJECTION SITE PAIN [None]
  - NEURALGIA [None]
  - PAIN [None]
  - PARAESTHESIA [None]
